FAERS Safety Report 12971460 (Version 1)
Quarter: 2016Q4

REPORT INFORMATION
  Report Type: Spontaneous
  Country: US (occurrence: US)
  Receive Date: 20161123
  Receipt Date: 20161123
  Transmission Date: 20170207
  Serious: No
  Sender: FDA-Public Use
  Company Number: US-JAZZ-2016-US-020093

PATIENT
  Sex: Male

DRUGS (26)
  1. TRULICITY [Concomitant]
     Active Substance: DULAGLUTIDE
  2. NOVOLOG [Concomitant]
     Active Substance: INSULIN ASPART
  3. TACLONEX [Concomitant]
     Active Substance: BETAMETHASONE DIPROPIONATE\CALCIPOTRIENE\CALCIPOTRIENE HYDRATE
  4. VYVANSE [Concomitant]
     Active Substance: LISDEXAMFETAMINE DIMESYLATE
  5. AMLODIPINE [Concomitant]
     Active Substance: AMLODIPINE BESYLATE
  6. TRILEPTAL [Concomitant]
     Active Substance: OXCARBAZEPINE
  7. ZOLPIDEM TARTRATE. [Concomitant]
     Active Substance: ZOLPIDEM TARTRATE
  8. TRICOR                             /00090101/ [Concomitant]
     Active Substance: ADENOSINE
  9. XANAX [Concomitant]
     Active Substance: ALPRAZOLAM
  10. XYREM [Suspect]
     Active Substance: SODIUM OXYBATE
     Dosage: 4 G, BID
     Route: 048
     Dates: start: 201604
  11. CARVEDILOL. [Concomitant]
     Active Substance: CARVEDILOL
  12. HYDROCHLOROTHIAZIDE. [Concomitant]
     Active Substance: HYDROCHLOROTHIAZIDE
  13. METFORMIN HCL [Concomitant]
     Active Substance: METFORMIN HYDROCHLORIDE
  14. HUMIRA [Concomitant]
     Active Substance: ADALIMUMAB
  15. KENALOG [Concomitant]
     Active Substance: TRIAMCINOLONE ACETONIDE
  16. LISINOPRIL. [Concomitant]
     Active Substance: LISINOPRIL
  17. LANTUS [Concomitant]
     Active Substance: INSULIN GLARGINE
  18. LIPITOR [Concomitant]
     Active Substance: ATORVASTATIN CALCIUM
  19. VIAGRA [Concomitant]
     Active Substance: SILDENAFIL CITRATE
  20. XYREM [Suspect]
     Active Substance: SODIUM OXYBATE
     Indication: NARCOLEPSY
     Dosage: 3.5 G, BID
     Route: 048
     Dates: start: 201501, end: 201603
  21. ABILIFY [Concomitant]
     Active Substance: ARIPIPRAZOLE
  22. KETAMINE [Concomitant]
     Active Substance: KETAMINE
  23. BETAMETHASONE DIPROPIONATE. [Concomitant]
     Active Substance: BETAMETHASONE DIPROPIONATE
  24. KLOR-CON [Concomitant]
     Active Substance: POTASSIUM CHLORIDE
  25. OMEPRAZOLE. [Concomitant]
     Active Substance: OMEPRAZOLE
  26. EFFEXOR [Concomitant]
     Active Substance: VENLAFAXINE HYDROCHLORIDE

REACTIONS (2)
  - Therapeutic response unexpected [Unknown]
  - Pre-existing condition improved [Unknown]
